FAERS Safety Report 24526995 (Version 1)
Quarter: 2024Q4

REPORT INFORMATION
  Report Type: Report from Study
  Country: US (occurrence: US)
  Receive Date: 20241021
  Receipt Date: 20241021
  Transmission Date: 20250115
  Serious: Yes (Other)
  Sender: JAZZ
  Company Number: US-JAZZ PHARMACEUTICALS-2023-US-019459

PATIENT
  Age: 25 Year
  Sex: Male

DRUGS (5)
  1. XYWAV [Suspect]
     Active Substance: CALCIUM OXYBATE\MAGNESIUM OXYBATE\POTASSIUM OXYBATE\SODIUM OXYBATE
     Indication: Narcolepsy
     Dosage: 2.25 GRAM, BID
  2. XYWAV [Suspect]
     Active Substance: CALCIUM OXYBATE\MAGNESIUM OXYBATE\POTASSIUM OXYBATE\SODIUM OXYBATE
     Indication: Cataplexy
     Dosage: 3.75 GRAM, BID
     Route: 048
  3. XYWAV [Suspect]
     Active Substance: CALCIUM OXYBATE\MAGNESIUM OXYBATE\POTASSIUM OXYBATE\SODIUM OXYBATE
     Indication: Somnolence
     Dosage: 4.5 GRAM, BID
  4. OXYCODONE HYDROCHLORIDE [Concomitant]
     Active Substance: OXYCODONE HYDROCHLORIDE
     Indication: Product used for unknown indication
     Dosage: UNK
     Dates: start: 20240206
  5. LUMRYZ [Concomitant]
     Active Substance: SODIUM OXYBATE
     Indication: Product used for unknown indication
     Dosage: UNK PACKET
     Dates: start: 20240916

REACTIONS (21)
  - Suicidal ideation [Recovering/Resolving]
  - Depression [Unknown]
  - Disability [Unknown]
  - Hunger [Unknown]
  - Thirst [Unknown]
  - Illness [Unknown]
  - Feeling drunk [Unknown]
  - Renal pain [Unknown]
  - Gastroenteritis viral [Unknown]
  - Feeling abnormal [Not Recovered/Not Resolved]
  - Nasal congestion [Unknown]
  - Paranoia [Unknown]
  - Vomiting [Unknown]
  - Cognitive disorder [Unknown]
  - Constipation [Recovering/Resolving]
  - Abdominal discomfort [Unknown]
  - Exposure to toxic agent [Unknown]
  - Blood pressure abnormal [Unknown]
  - Drug effect less than expected [Not Recovered/Not Resolved]
  - Product dose omission issue [Unknown]
  - Intentional product use issue [Unknown]

NARRATIVE: CASE EVENT DATE: 20230919
